FAERS Safety Report 25847618 (Version 1)
Quarter: 2025Q3

REPORT INFORMATION
  Report Type: Spontaneous
  Country: EU (occurrence: EU)
  Receive Date: 20250925
  Receipt Date: 20250925
  Transmission Date: 20251021
  Serious: Yes (Other)
  Sender: DAIICHI
  Company Number: EU-PPH-29930-2

PATIENT
  Age: 85 Year
  Sex: Male

DRUGS (10)
  1. EDOXABAN [Suspect]
     Active Substance: EDOXABAN
     Indication: Anticoagulant therapy
     Route: 065
     Dates: start: 202408
  2. TORSEMIDE [Suspect]
     Active Substance: TORSEMIDE
     Indication: Hypertension
     Dosage: 10 MG, QD, ONCE MORNINGS
     Route: 065
     Dates: start: 202408
  3. TORSEMIDE [Suspect]
     Active Substance: TORSEMIDE
     Indication: Pulmonary hypertension
  4. LISINOPRIL [Suspect]
     Active Substance: LISINOPRIL
     Indication: Hypertension
     Dosage: 5 MG, QD, ONCE EVENINGS
     Route: 065
     Dates: start: 202408
  5. LISINOPRIL [Suspect]
     Active Substance: LISINOPRIL
     Indication: Pulmonary hypertension
  6. METILDIGOXIN [Suspect]
     Active Substance: METILDIGOXIN
     Indication: Hypertension
     Dosage: 0.1 MG, QD,  ONCE MORNINGS
     Route: 065
     Dates: start: 202408
  7. METILDIGOXIN [Suspect]
     Active Substance: METILDIGOXIN
     Indication: Pulmonary hypertension
  8. PANTOPRAZOLE [Suspect]
     Active Substance: PANTOPRAZOLE
     Indication: Product used for unknown indication
     Dosage: 40 MG, QD ONCE MORNINGS
     Route: 065
     Dates: start: 202408
  9. LIDOCAINE [Concomitant]
     Active Substance: LIDOCAINE
     Indication: Local anaesthesia
     Route: 065
  10. NADROPARIN CALCIUM [Concomitant]
     Active Substance: NADROPARIN CALCIUM
     Indication: Anticoagulant therapy
     Route: 058

REACTIONS (1)
  - Basal cell carcinoma [Recovered/Resolved]
